FAERS Safety Report 7509078-X (Version None)
Quarter: 2011Q2

REPORT INFORMATION
  Report Type: 
  Country: None (occurrence: None)
  Receive Date: 20110527
  Receipt Date: 20110517
  Transmission Date: 20111010
  Serious: Yes (Death)
  Sender: FDA-Public Use
  Company Number: FI-BAYER-2011-042648

PATIENT
  Age: 69 Year
  Sex: Male

DRUGS (1)
  1. NEXAVAR [Suspect]
     Indication: RENAL CANCER METASTATIC
     Dosage: UNK
     Route: 048
     Dates: start: 20100319

REACTIONS (2)
  - MYOCARDIAL INFARCTION [None]
  - CARDIAC TAMPONADE [None]
